FAERS Safety Report 7568345-4 (Version None)
Quarter: 2011Q2

REPORT INFORMATION
  Report Type: 
  Country: None (occurrence: None)
  Receive Date: 20110623
  Receipt Date: 20110616
  Transmission Date: 20111010
  Serious: Yes (Death)
  Sender: FDA-Public Use
  Company Number: A0931735A

PATIENT
  Age: 67 Year
  Sex: Male

DRUGS (1)
  1. AVANDIA [Suspect]
     Dosage: 2MG THREE TIMES PER DAY
     Route: 048

REACTIONS (3)
  - SHOCK [None]
  - NEOPLASM MALIGNANT [None]
  - NEPHROPATHY [None]
